FAERS Safety Report 4626435-X (Version None)
Quarter: 2005Q2

REPORT INFORMATION
  Report Type: 
  Country: None (occurrence: None)
  Receive Date: 20050404
  Receipt Date: 20050325
  Transmission Date: 20051028
  Serious: Yes (Hospitalization)
  Sender: FDA-Public Use
  Company Number: FR-ABBOTT-05P-056-0295532-00

PATIENT
  Age: 65 Year
  Sex: Female

DRUGS (10)
  1. NAXY TABLETS [Suspect]
     Indication: BRONCHITIS
     Route: 048
     Dates: start: 20050103, end: 20050110
  2. ACENOCOUMAROL [Concomitant]
     Indication: DRUG USE FOR UNKNOWN INDICATION
     Dates: end: 20050112
  3. ACENOCOUMAROL [Concomitant]
     Dates: start: 20050116
  4. ISOBAR [Concomitant]
     Indication: ESSENTIAL HYPERTENSION
  5. CARBOCISTEINE [Concomitant]
     Indication: DRUG USE FOR UNKNOWN INDICATION
  6. PARACETAMOL [Concomitant]
     Indication: DRUG USE FOR UNKNOWN INDICATION
  7. VEINOTONYL [Concomitant]
     Indication: DRUG USE FOR UNKNOWN INDICATION
  8. SYMBICORT ^ASTRAZENECA^ [Concomitant]
     Indication: DRUG USE FOR UNKNOWN INDICATION
  9. LATANOPROST [Concomitant]
     Indication: DRUG USE FOR UNKNOWN INDICATION
  10. ALBUTEROL [Concomitant]
     Indication: DRUG USE FOR UNKNOWN INDICATION

REACTIONS (8)
  - CONSTIPATION [None]
  - DYSPEPSIA [None]
  - HYPONATRAEMIA [None]
  - INFLAMMATION [None]
  - INTERSTITIAL LUNG DISEASE [None]
  - NAUSEA [None]
  - RALES [None]
  - VOMITING [None]
